FAERS Safety Report 21450091 (Version 5)
Quarter: 2024Q2

REPORT INFORMATION
  Report Type: Report from Study
  Country: JP (occurrence: None)
  Receive Date: 20221013
  Receipt Date: 20240404
  Transmission Date: 20240715
  Serious: Yes (Death, Hospitalization)
  Sender: FDA-Public Use
  Company Number: 2022A341173

PATIENT
  Age: 100 Year
  Sex: Female
  Weight: 50 kg

DRUGS (2)
  1. ONDEXXYA [Suspect]
     Active Substance: ANDEXANET ALFA
     Indication: Epidural haemorrhage
     Route: 041
     Dates: start: 20220928
  2. KCENTRA [Concomitant]
     Active Substance: COAGULATION FACTOR IX HUMAN\COAGULATION FACTOR VII HUMAN\COAGULATION FACTOR X HUMAN\PROTEIN C\PROTEI
     Indication: Epidural haemorrhage
     Dosage: DOSE UNKNOWN
     Route: 042
     Dates: start: 20220928, end: 20220928

REACTIONS (2)
  - Cerebral infarction [Fatal]
  - Thrombosis [Fatal]

NARRATIVE: CASE EVENT DATE: 20221001
